FAERS Safety Report 8542146 (Version 2)
Quarter: 2012Q4

REPORT INFORMATION
  Report Type: 
  Country: US (occurrence: US)
  Receive Date: 20120502
  Receipt Date: 20121022
  Transmission Date: 20130627
  Serious: Yes (Hospitalization)
  Sender: FDA-Public Use
  Company Number: US-AMGEN-USASP2012022059

PATIENT
  Age: 37 Year
  Sex: Female

DRUGS (1)
  1. ENBREL [Suspect]
     Indication: RHEUMATOID ARTHRITIS
     Dosage: 25 mg, 3 times/wk
     Dates: start: 20110724

REACTIONS (5)
  - Uterine leiomyoma [Recovered/Resolved]
  - Fallopian tube disorder [Recovered/Resolved]
  - Uterine cyst [Recovered/Resolved]
  - Rheumatoid arthritis [Recovered/Resolved]
  - Bronchitis [Not Recovered/Not Resolved]
